FAERS Safety Report 15996318 (Version 5)
Quarter: 2020Q1

REPORT INFORMATION
  Report Type: Spontaneous
  Country: FR (occurrence: FR)
  Receive Date: 20190222
  Receipt Date: 20200323
  Transmission Date: 20200409
  Serious: Yes (Hospitalization, Disabling, Other)
  Sender: FDA-Public Use
  Company Number: FR-009507513-1901FRA000411

PATIENT
  Sex: Female

DRUGS (7)
  1. SINEMET L.P. [Suspect]
     Active Substance: CARBIDOPA\LEVODOPA
     Dosage: 700 MILLIGRAM, QD
     Route: 048
  2. SINEMET L.P. [Suspect]
     Active Substance: CARBIDOPA\LEVODOPA
     Dosage: UNK
  3. SINEMET L.P. [Suspect]
     Active Substance: CARBIDOPA\LEVODOPA
     Indication: PARKINSON^S DISEASE
     Dosage: 1.5 DOSAGE FORM (150 MG) QID (8AM, NOON, 4PM, 8PM)
     Route: 048
     Dates: start: 2008
  4. SINEMET L.P. [Suspect]
     Active Substance: CARBIDOPA\LEVODOPA
     Dosage: 0.5 DOSAGE FORM (50 MG) QID
     Route: 048
  5. SINEMET L.P. [Suspect]
     Active Substance: CARBIDOPA\LEVODOPA
     Dosage: 1.5 TABLETS OF 100 MG IN THE MORNING, AT NOON, EVENING AND 2 TABLETS AT 5PM
     Route: 048
  6. SINEMET L.P. [Suspect]
     Active Substance: CARBIDOPA\LEVODOPA
     Dosage: 150 MILLIGRAM, TID (MORNING, NOON, AND EVENING)
     Route: 048
  7. SINEMET L.P. [Suspect]
     Active Substance: CARBIDOPA\LEVODOPA
     Dosage: 2 TABLETS OF 100 MG IN THE MORNING AT 4PM AND 1.5 TABLET IN THE NOON AND EVENING
     Route: 048

REACTIONS (31)
  - Aortic valve incompetence [Unknown]
  - Urinary tract infection [Unknown]
  - Scoliosis [Unknown]
  - Amnesia [Unknown]
  - Carotid arteriosclerosis [Unknown]
  - Gallbladder disorder [Unknown]
  - Loss of personal independence in daily activities [Unknown]
  - Speech disorder [Unknown]
  - Abnormal dreams [Unknown]
  - Wrong technique in product usage process [Unknown]
  - Depression [Not Recovered/Not Resolved]
  - Peripheral arterial occlusive disease [Unknown]
  - Tremor [Recovered/Resolved]
  - Gait disturbance [Unknown]
  - Gambling disorder [Unknown]
  - Joint dislocation [Unknown]
  - Aortic arteriosclerosis [Unknown]
  - Psychomotor retardation [Unknown]
  - Mitral valve incompetence [Unknown]
  - Osteoarthritis [Unknown]
  - Impulsive behaviour [Unknown]
  - Goitre [Unknown]
  - Cataract [Unknown]
  - Pathological fracture [Unknown]
  - Lumbar spinal stenosis [Unknown]
  - Nightmare [Unknown]
  - Hypercholesterolaemia [Unknown]
  - Hypothyroidism [Unknown]
  - Disturbance in sexual arousal [Unknown]
  - Foot deformity [Unknown]
  - Osteopenia [Unknown]

NARRATIVE: CASE EVENT DATE: 2008
